FAERS Safety Report 6531965-X (Version None)
Quarter: 2010Q1

REPORT INFORMATION
  Report Type: 
  Country: None (occurrence: None)
  Receive Date: 20100108
  Receipt Date: 20100104
  Transmission Date: 20100710
  Serious: Yes (Other)
  Sender: FDA-Public Use
  Company Number: BR-PFIZER INC-2009260095

PATIENT
  Age: 40 Year
  Sex: Male
  Weight: 85 kg

DRUGS (2)
  1. VIAGRA [Suspect]
     Indication: ERECTILE DYSFUNCTION
     Dosage: 50 MG, AS NEEDED
     Route: 048
     Dates: start: 20020101
  2. OMEPRAZOLE [Concomitant]
     Indication: GASTRIC DISORDER
     Dosage: UNK

REACTIONS (8)
  - DRUG EFFECT PROLONGED [None]
  - DYSPNOEA [None]
  - ERECTION INCREASED [None]
  - FLUSHING [None]
  - HEART RATE INCREASED [None]
  - PENILE SWELLING [None]
  - PENIS DISORDER [None]
  - SINUSITIS [None]
